FAERS Safety Report 5237307-4 (Version None)
Quarter: 2007Q1

REPORT INFORMATION
  Report Type: 
  Country: None (occurrence: None)
  Receive Date: 20070213
  Receipt Date: 20070203
  Transmission Date: 20070707
  Serious: Yes (Hospitalization)
  Sender: FDA-Public Use
  Company Number: BR-JNJFOC-20070201429

PATIENT
  Age: 28 Year
  Sex: Male
  Weight: 70 kg

DRUGS (3)
  1. HALDOL [Suspect]
     Indication: DRUG USE FOR UNKNOWN INDICATION
     Route: 048
  2. BIPERIDEN HYDROCHLORIDE TAB [Suspect]
     Indication: DRUG USE FOR UNKNOWN INDICATION
     Route: 048
  3. DIAZEPAM [Suspect]
     Indication: DRUG USE FOR UNKNOWN INDICATION
     Route: 048

REACTIONS (3)
  - SOMNOLENCE [None]
  - SUICIDE ATTEMPT [None]
  - UNRESPONSIVE TO STIMULI [None]
